FAERS Safety Report 7730206-5 (Version None)
Quarter: 2011Q3

REPORT INFORMATION
  Report Type: 
  Country: None (occurrence: None)
  Receive Date: 20110906
  Receipt Date: 20110901
  Transmission Date: 20111222
  Serious: Yes (Death, Other)
  Sender: FDA-Public Use
  Company Number: PHHY2011JP71021

PATIENT
  Age: 44 Year
  Sex: Female

DRUGS (5)
  1. CHEMOTHERAPEUTICS [Concomitant]
  2. PACLITAXEL + CARBOPLATIN [Concomitant]
     Dosage: UNK UKN, UNK
     Dates: start: 20101020
  3. PACLITAXEL + CARBOPLATIN [Concomitant]
     Dosage: UNK UKN, UNK
     Dates: start: 20100106
  4. SANDOSTATIN [Suspect]
     Dosage: 100 UG/ DAY
     Route: 058
     Dates: start: 20100507
  5. SANDOSTATIN [Suspect]
     Indication: INTESTINAL OBSTRUCTION
     Dosage: 300 UG/ DAY
     Route: 058
     Dates: start: 20100304, end: 20100315

REACTIONS (2)
  - DEATH [None]
  - BRADYCARDIA [None]
